FAERS Safety Report 18024945 (Version 3)
Quarter: 2020Q4

REPORT INFORMATION
  Report Type: Report from Study
  Country: JP (occurrence: JP)
  Receive Date: 20200715
  Receipt Date: 20201009
  Transmission Date: 20210113
  Serious: Yes (Other)
  Sender: FDA-Public Use
  Company Number: JP-ASTELLAS-2020JP010353

PATIENT
  Age: 37 Year
  Sex: Female
  Weight: 60 kg

DRUGS (12)
  1. EPINASTINE HYDROCHLORIDE. [Concomitant]
     Active Substance: EPINASTINE HYDROCHLORIDE
     Indication: RASH MACULO-PAPULAR
     Dates: start: 20200710, end: 20200713
  2. FEXOFENADINE HYDROCHLORIDE. [Concomitant]
     Active Substance: FEXOFENADINE HYDROCHLORIDE
     Indication: RASH MACULO-PAPULAR
     Dates: start: 20200710, end: 20200716
  3. ASG-22CE [Suspect]
     Active Substance: ENFORTUMAB VEDOTIN
     Indication: BREAST CANCER
     Dosage: 1.25 MG/KG, WEEKLY FOR 3 CONSECUTIVE WEEKS FOLLOWED BY 1 WEEK REST
     Route: 042
     Dates: start: 20200629
  4. TRAMCET [Concomitant]
     Active Substance: ACETAMINOPHEN\TRAMADOL
     Indication: TUMOUR PAIN
     Dates: start: 20180118
  5. OXINORM [OXYCODONE HYDROCHLORIDE] [Concomitant]
     Active Substance: OXYCODONE HYDROCHLORIDE
     Indication: TUMOUR PAIN
     Route: 048
     Dates: start: 20161121
  6. MAGNESIUM OXIDE. [Concomitant]
     Active Substance: MAGNESIUM OXIDE
     Indication: CONSTIPATION
     Dates: start: 20161121
  7. LOXOPROFEN [Concomitant]
     Active Substance: LOXOPROFEN
     Indication: TUMOUR PAIN
     Dates: start: 20161111
  8. OXYCONTIN [Concomitant]
     Active Substance: OXYCODONE HYDROCHLORIDE
     Indication: TUMOUR PAIN
     Route: 048
     Dates: start: 20161122
  9. DENOTAS [Concomitant]
     Active Substance: CALCIUM CARBONATE\CHOLECALCIFEROL\MAGNESIUM CARBONATE
     Indication: METASTASES TO BONE
     Dates: start: 20161125
  10. LANSOPRAZOLE. [Concomitant]
     Active Substance: LANSOPRAZOLE
     Indication: PROPHYLAXIS AGAINST GASTROINTESTINAL ULCER
     Dates: start: 20170104
  11. LYRICA [Concomitant]
     Active Substance: PREGABALIN
     Indication: PERIPHERAL SENSORY NEUROPATHY
     Dates: start: 20191016
  12. ASG-22CE [Suspect]
     Active Substance: ENFORTUMAB VEDOTIN
     Dosage: 1.0 MG/KG, WEEKLY FOR 3 CONSECUTIVE WEEKS FOLLOWED BY 1 WEEK REST
     Route: 042
     Dates: start: 20200727

REACTIONS (3)
  - Rash maculo-papular [Recovering/Resolving]
  - Aspartate aminotransferase increased [Recovering/Resolving]
  - Alanine aminotransferase increased [Recovering/Resolving]

NARRATIVE: CASE EVENT DATE: 20200714
